FAERS Safety Report 4296321-6 (Version None)
Quarter: 2004Q1

REPORT INFORMATION
  Report Type: 
  Country: None (occurrence: None)
  Receive Date: 20040213
  Receipt Date: 20040213
  Transmission Date: 20041129
  Serious: Yes (Hospitalization)
  Sender: FDA-Public Use
  Company Number: None

PATIENT
  Sex: Female
  Weight: 82.5547 kg

DRUGS (5)
  1. ZITHROMAX [Suspect]
     Indication: BRONCHITIS
     Dosage: PO [PRIOR TO ADMISSION]
     Route: 048
  2. CARBAMAZEPINE [Concomitant]
  3. LAMICTAL [Concomitant]
  4. B/P MEDS [Concomitant]
  5. CHOLESTEROL MEDS [Concomitant]

REACTIONS (3)
  - ASTHENIA [None]
  - DIARRHOEA [None]
  - NAUSEA [None]
